FAERS Safety Report 19918642 (Version 2)
Quarter: 2021Q4

REPORT INFORMATION
  Report Type: Report from Study
  Country: IL (occurrence: IL)
  Receive Date: 20211004
  Receipt Date: 20211012
  Transmission Date: 20220303
  Serious: Yes (Death, Life-Threatening, Hospitalization, Other)
  Sender: FDA-Public Use
  Company Number: IL-BRISTOL-MYERS SQUIBB COMPANY-BMS-2021-089350

PATIENT
  Age: 84 Year
  Sex: Male
  Weight: 80 kg

DRUGS (13)
  1. INVESTIGATIONAL PRODUCT [Suspect]
     Active Substance: INVESTIGATIONAL PRODUCT
     Indication: Malignant melanoma
     Dosage: 0.48 MILLIGRAM
     Route: 042
     Dates: start: 20210610, end: 20210812
  2. NIVOLUMAB [Suspect]
     Active Substance: NIVOLUMAB
     Indication: Malignant melanoma
     Dosage: 360 MILLIGRAM
     Route: 042
     Dates: start: 20210610, end: 20210812
  3. ALLOPURINOL [Concomitant]
     Active Substance: ALLOPURINOL
     Indication: Product used for unknown indication
     Dosage: 300 MILLIGRAM
     Route: 048
     Dates: start: 2008
  4. ASPIRIN [Concomitant]
     Active Substance: ASPIRIN
     Indication: Product used for unknown indication
     Dosage: 100 MILLIGRAM
     Route: 048
     Dates: start: 2008
  5. CADEX [DOXAZOSIN MESILATE] [Concomitant]
     Indication: Product used for unknown indication
     Dosage: 4 MILLIGRAM
     Route: 048
     Dates: start: 2008
  6. RAMIPRIL [Concomitant]
     Active Substance: RAMIPRIL
     Indication: Product used for unknown indication
     Dosage: 2.5 MILLIGRAM
     Route: 048
     Dates: start: 2008
  7. CYMBALTA [Concomitant]
     Active Substance: DULOXETINE HYDROCHLORIDE
     Indication: Product used for unknown indication
     Dosage: 30 MILLIGRAM
     Route: 048
     Dates: start: 2021
  8. SOLU-MEDROL [Concomitant]
     Active Substance: METHYLPREDNISOLONE SODIUM SUCCINATE
     Indication: Product used for unknown indication
     Dosage: 1 ABSENT
     Route: 042
     Dates: start: 20210824, end: 20210827
  9. PFIZER-BIONTECH COVID-19 VACCINE [Concomitant]
     Active Substance: TOZINAMERAN
     Indication: Prophylaxis
     Dosage: COVID 19 PFIZER3RD VACCINE
     Route: 030
     Dates: start: 20210810
  10. POTASSIUM CHLORIDE [Concomitant]
     Active Substance: POTASSIUM CHLORIDE
     Indication: Product used for unknown indication
     Dosage: 1 DOSAGE FORM = 20 UNITS NOS
     Route: 042
     Dates: start: 20210828, end: 20210828
  11. POTASSIUM CHLORIDE [Concomitant]
     Active Substance: POTASSIUM CHLORIDE
     Dosage: 1800 MILLIGRAM
     Route: 048
     Dates: start: 20210829, end: 20210831
  12. GLUCOPHAGE [Concomitant]
     Active Substance: METFORMIN HYDROCHLORIDE
     Indication: Product used for unknown indication
     Dosage: 1700 MILLIGRAM
     Route: 048
     Dates: start: 2008, end: 20210928
  13. PREDNISONE [Concomitant]
     Active Substance: PREDNISONE
     Indication: Product used for unknown indication
     Dosage: 60 MILLIGRAM
     Route: 048
     Dates: start: 20210828

REACTIONS (2)
  - Sepsis [Fatal]
  - Pulmonary embolism [Not Recovered/Not Resolved]

NARRATIVE: CASE EVENT DATE: 20210902
